FAERS Safety Report 6663178-5 (Version None)
Quarter: 2010Q2

REPORT INFORMATION
  Report Type: 
  Country: None (occurrence: None)
  Receive Date: 20100401
  Receipt Date: 20100323
  Transmission Date: 20101027
  Serious: Yes (Other)
  Sender: FDA-Public Use
  Company Number: GB-JNJFOC-20090906736

PATIENT
  Sex: Female

DRUGS (6)
  1. REMICADE [Suspect]
     Indication: CROHN'S DISEASE
     Route: 042
  2. AZATHIOPRINE [Concomitant]
  3. PENTASA [Concomitant]
  4. FERROUS SULFATE TAB [Concomitant]
  5. CALCICHEW D3 [Concomitant]
  6. VITAMIN B-12 [Concomitant]

REACTIONS (1)
  - AMNESIA [None]
